FAERS Safety Report 9325927 (Version 2)
Quarter: 2013Q3

REPORT INFORMATION
  Report Type: Spontaneous
  Country: MX (occurrence: MX)
  Receive Date: 20130604
  Receipt Date: 20130801
  Transmission Date: 20140515
  Serious: Yes (Other)
  Sender: FDA-Public Use
  Company Number: MX-GENZYME-THYM-1003845

PATIENT
  Age: 22 Year
  Sex: Female

DRUGS (2)
  1. THYMOGLOBULINE [Suspect]
     Indication: APLASTIC ANAEMIA
     Dosage: UNK, (2 CYCLES)
     Route: 042
  2. MYCOPHENOLATE MOFETIL [Concomitant]
     Indication: APLASTIC ANAEMIA
     Dosage: UNK, (1X3)
     Route: 065

REACTIONS (3)
  - Epistaxis [Unknown]
  - Drug ineffective [Unknown]
  - Contusion [Unknown]
